FAERS Safety Report 17887537 (Version 1)
Quarter: 2020Q2

REPORT INFORMATION
  Report Type: Spontaneous
  Country: CA (occurrence: CA)
  Receive Date: 20200611
  Receipt Date: 20200611
  Transmission Date: 20200714
  Serious: Yes (Other)
  Sender: FDA-Public Use
  Company Number: CA-SAMSUNG BIOEPIS-SB-2020-18809

PATIENT
  Age: 57 Year
  Sex: Female

DRUGS (2)
  1. ETANERCEPT [Suspect]
     Active Substance: ETANERCEPT
     Route: 058
  2. ETANERCEPT [Suspect]
     Active Substance: ETANERCEPT
     Indication: ANKYLOSING SPONDYLITIS
     Route: 058

REACTIONS (14)
  - Post procedural complication [Unknown]
  - Tooth disorder [Unknown]
  - Fatigue [Unknown]
  - Neck pain [Unknown]
  - Arthralgia [Unknown]
  - Injection site bruising [Unknown]
  - Injection site pain [Unknown]
  - Cellulitis [Unknown]
  - Tenderness [Unknown]
  - Bacterial infection [Unknown]
  - Impaired healing [Unknown]
  - Joint swelling [Unknown]
  - Back pain [Unknown]
  - Discomfort [Unknown]
